FAERS Safety Report 5333358-X (Version None)
Quarter: 2007Q2

REPORT INFORMATION
  Report Type: 
  Country: None (occurrence: None)
  Receive Date: 20070524
  Receipt Date: 20070511
  Transmission Date: 20071010
  Serious: Yes (Hospitalization)
  Sender: FDA-Public Use
  Company Number: GB-AMGEN-US225584

PATIENT
  Sex: Female

DRUGS (6)
  1. ENBREL [Suspect]
     Indication: JUVENILE ARTHRITIS
     Route: 058
     Dates: start: 20030109, end: 20061224
  2. ENBREL [Suspect]
     Route: 058
     Dates: start: 20070205
  3. PREDNISOLONE [Concomitant]
     Dosage: UNKNOWN
     Dates: start: 19950101
  4. FOLIC ACID [Concomitant]
     Dosage: UNKNOWN
  5. METHOTREXATE [Concomitant]
     Route: 065
     Dates: start: 20000101
  6. METHOTREXATE [Concomitant]
     Route: 065
     Dates: start: 20070205

REACTIONS (3)
  - ABORTION SPONTANEOUS [None]
  - CHLAMYDIA SEROLOGY POSITIVE [None]
  - DRUG EXPOSURE DURING PREGNANCY [None]
